FAERS Safety Report 21547505 (Version 1)
Quarter: 2022Q4

REPORT INFORMATION
  Report Type: Spontaneous
  Country: US (occurrence: None)
  Receive Date: 20221102
  Receipt Date: 20221102
  Transmission Date: 20230113
  Serious: Yes (Other)
  Sender: FDA-Public Use
  Company Number: None

PATIENT
  Age: 30 Year
  Sex: Male
  Weight: 106 kg

DRUGS (4)
  1. TIXAGEVIMAB [Suspect]
     Active Substance: TIXAGEVIMAB
     Indication: COVID-19 treatment
     Dosage: FREQUENCY : ONCE;?
     Route: 030
     Dates: start: 20220411, end: 20220411
  2. TIXAGEVIMAB [Suspect]
     Active Substance: TIXAGEVIMAB
     Indication: Renal transplant
  3. TIXAGEVIMAB [Suspect]
     Active Substance: TIXAGEVIMAB
     Indication: Immunosuppression
  4. Cilvavimab [Concomitant]
     Dates: start: 20220411, end: 20220411

REACTIONS (3)
  - Dermatitis bullous [None]
  - Injection site rash [None]
  - Herpes zoster [None]

NARRATIVE: CASE EVENT DATE: 20220413
